FAERS Safety Report 8546833 (Version 2)
Quarter: 2012Q4

REPORT INFORMATION
  Report Type: 
  Country: AU (occurrence: AU)
  Receive Date: 20120504
  Receipt Date: 20120829
  Transmission Date: 20130627
  Serious: Yes (Hospitalization)
  Sender: FDA-Public Use
  Company Number: PHHY2012AU037691

PATIENT
  Age: 32 Year
  Sex: Male

DRUGS (2)
  1. CLOZARIL [Suspect]
     Dosage: 600 mg
     Dates: start: 20100428
  2. CLOZARIL [Suspect]
     Dosage: 100 mg
     Dates: start: 20100428

REACTIONS (1)
  - Schizophrenia [Unknown]
